FAERS Safety Report 22866369 (Version 9)
Quarter: 2023Q4

REPORT INFORMATION
  Report Type: Report from Study
  Country: CN (occurrence: None)
  Receive Date: 20230825
  Receipt Date: 20231003
  Transmission Date: 20240110
  Serious: Yes (Hospitalization)
  Sender: FDA-Public Use
  Company Number: CN-Eisai Medical Research-EC-2023-147211

PATIENT
  Age: 69 Year
  Sex: Male
  Weight: 59 kg

DRUGS (8)
  1. LENVATINIB [Suspect]
     Active Substance: LENVATINIB
     Indication: Hepatocellular carcinoma
     Dosage: STARTING AT 12 MG, FLUCTUATED DOSAGE
     Route: 048
     Dates: start: 20220317, end: 20230424
  2. LENVATINIB [Suspect]
     Active Substance: LENVATINIB
     Route: 048
     Dates: start: 20230425
  3. PEMBROLIZUMAB [Suspect]
     Active Substance: PEMBROLIZUMAB
     Indication: Hepatocellular carcinoma
     Dosage: PEMBROLIZUMAB 400 MG (+) QUAVONLIMAB 25 MG
     Route: 042
     Dates: start: 20220317, end: 20230404
  4. QUAVONLIMAB [Suspect]
     Active Substance: QUAVONLIMAB
     Dosage: PEMBROLIZUMAB 400 MG (+) QUAVONLIMAB 25 MG
     Route: 042
     Dates: start: 20230515
  5. ENTECAVIR [Concomitant]
     Active Substance: ENTECAVIR
     Dates: start: 2016
  6. INDAPAMIDE\PERINDOPRIL [Concomitant]
     Active Substance: INDAPAMIDE\PERINDOPRIL
     Dates: start: 20220615, end: 20230816
  7. FEBUXOSTAT [Concomitant]
     Active Substance: FEBUXOSTAT
     Dates: start: 20230317, end: 20230403
  8. BISOPROLOL FUMARATE [Concomitant]
     Active Substance: BISOPROLOL FUMARATE
     Dates: start: 20230213, end: 20230816

REACTIONS (1)
  - Immune-mediated enterocolitis [Recovering/Resolving]

NARRATIVE: CASE EVENT DATE: 20230415
